FAERS Safety Report 9962075 (Version 1)
Quarter: 2014Q1

REPORT INFORMATION
  Report Type: Report from Study
  Country: US (occurrence: US)
  Receive Date: 20140305
  Receipt Date: 20140305
  Transmission Date: 20141002
  Serious: No
  Sender: FDA-Public Use
  Company Number: US-ABBVIE-13P-163-1111712-00

PATIENT
  Age: 29 Year
  Sex: Male

DRUGS (4)
  1. HUMIRA [Suspect]
     Indication: CROHN^S DISEASE
     Dates: start: 20130512
  2. HUMIRA [Suspect]
     Dates: start: 20130524
  3. HUMIRA [Suspect]
     Dates: start: 20130607
  4. HUMIRA [Suspect]
     Dates: start: 20130625

REACTIONS (5)
  - Inappropriate schedule of drug administration [Recovered/Resolved]
  - Wrong technique in drug usage process [Unknown]
  - Incorrect route of drug administration [Unknown]
  - Pain in extremity [Recovered/Resolved]
  - Haemorrhage [Recovered/Resolved]
